FAERS Safety Report 12736909 (Version 1)
Quarter: 2016Q3

REPORT INFORMATION
  Report Type: Spontaneous
  Country: US (occurrence: US)
  Receive Date: 20160912
  Receipt Date: 20160912
  Transmission Date: 20161109
  Serious: No
  Sender: FDA-Public Use
  Company Number: US-GLAXOSMITHKLINE-US2016131831

PATIENT
  Age: 50 Year
  Sex: Female

DRUGS (2)
  1. ABREVA [Suspect]
     Active Substance: DOCOSANOL
     Indication: DENTAL DISORDER PROPHYLAXIS
     Dosage: UNK
  2. POLIDENT DENTURE CLEANSER TABLETS TABLET [Suspect]
     Active Substance: SODIUM BICARBONATE
     Indication: DENTAL DISORDER PROPHYLAXIS
     Dosage: UNK
     Dates: start: 2015

REACTIONS (5)
  - Paraesthesia oral [Not Recovered/Not Resolved]
  - Intentional product use issue [Unknown]
  - Hypoaesthesia oral [Not Recovered/Not Resolved]
  - Lip swelling [Not Recovered/Not Resolved]
  - Lip pruritus [Not Recovered/Not Resolved]

NARRATIVE: CASE EVENT DATE: 201608
